FAERS Safety Report 7295330-2 (Version None)
Quarter: 2011Q1

REPORT INFORMATION
  Report Type: 
  Country: None (occurrence: None)
  Receive Date: 20110207
  Receipt Date: 20110127
  Transmission Date: 20110831
  Serious: Yes (Death, Hospitalization, Other)
  Sender: FDA-Public Use
  Company Number: CL-290-2011

PATIENT
  Age: 17 Year
  Sex: Female

DRUGS (4)
  1. CASPOFUNGIN UNK [Suspect]
  2. TRIMETHOPRIM-SULFAMETHOXAZOLE UNK [Suspect]
  3. MYCOPHENOLATE MOFETIL [Suspect]
     Indication: IMMUNOSUPPRESSION
     Dosage: INTRAVENOUS
     Route: 042
  4. CIPROFLOXACIN [Suspect]
     Dosage: INTRAVENOUS
     Route: 042

REACTIONS (3)
  - DRUG LEVEL DECREASED [None]
  - DRUG INTERACTION [None]
  - GRAFT VERSUS HOST DISEASE [None]
